FAERS Safety Report 8781496 (Version 1)
Quarter: 2012Q4

REPORT INFORMATION
  Report Type: 
  Country: US (occurrence: US)
  Receive Date: 20120913
  Receipt Date: 20120913
  Transmission Date: 20130627
  Serious: Yes (Hospitalization)
  Sender: FDA-Public Use
  Company Number: US-ASTRAZENECA-2012SE69600

PATIENT
  Age: 75 Year
  Sex: Male
  Weight: 84.5 kg

DRUGS (12)
  1. CANDESARTAN [Suspect]
     Route: 048
  2. CANDESARTAN [Suspect]
     Route: 048
  3. SUNITINIB [Suspect]
     Route: 048
     Dates: start: 20070830
  4. SUNITINIB [Suspect]
     Dosage: 50 MG DAILY, TOTAL DOSE ADMINISTERED THIS COURSE 1125 MG (DAY18-DAY-28, DOSE REDUCED TO 25 MG)
     Route: 048
     Dates: start: 20080911, end: 20081008
  5. PLACEBO [Suspect]
  6. SORAFENIB [Suspect]
     Route: 048
     Dates: start: 20070830
  7. SORAFENIB [Suspect]
     Dosage: TOTAL DOSE ADMINISTERED THIS COURSE OF 800 MG
     Route: 048
     Dates: end: 20081022
  8. CARVEDILOL [Suspect]
  9. FINASTERIDE [Suspect]
  10. TAMSULOSIN [Suspect]
  11. FUROSEMIDE [Concomitant]
  12. LANSOPRAZOLE [Concomitant]

REACTIONS (2)
  - Syncope [Unknown]
  - Urinary tract infection [Recovering/Resolving]
